FAERS Safety Report 13845052 (Version 3)
Quarter: 2017Q3

REPORT INFORMATION
  Report Type: Report from Study
  Country: DO (occurrence: DO)
  Receive Date: 20170808
  Receipt Date: 20170823
  Transmission Date: 20171127
  Serious: Yes (Other)
  Sender: FDA-Public Use
  Company Number: PHHY2017DO115921

PATIENT
  Age: 43 Year
  Sex: Male
  Weight: 83.9 kg

DRUGS (2)
  1. SCAPHO [Suspect]
     Active Substance: SECUKINUMAB
     Indication: ANKYLOSING SPONDYLITIS
     Dosage: 1 DF, QW
     Route: 058
     Dates: start: 20170703
  2. SCAPHO [Suspect]
     Active Substance: SECUKINUMAB
     Dosage: UNK, QMO
     Route: 058
     Dates: start: 20170801

REACTIONS (1)
  - Ocular hyperaemia [Recovered/Resolved]

NARRATIVE: CASE EVENT DATE: 20170721
